FAERS Safety Report 4553154-0 (Version None)
Quarter: 2005Q1

REPORT INFORMATION
  Report Type: 
  Country: None (occurrence: None)
  Receive Date: 20050114
  Receipt Date: 20050104
  Transmission Date: 20050727
  Serious: Yes (Other)
  Sender: FDA-Public Use
  Company Number: GB-GLAXOSMITHKLINE-B0363350A

PATIENT
  Age: 54 Year
  Sex: Female
  Weight: 55 kg

DRUGS (3)
  1. PAROXETINE HCL [Suspect]
     Indication: DEPRESSION
     Route: 048
     Dates: start: 20020101
  2. LIGNOSTAB [Suspect]
     Indication: HYPOAESTHESIA
     Route: 065
     Dates: start: 20030101, end: 20030101
  3. INSULIN [Concomitant]
     Indication: DIABETES MELLITUS INSULIN-DEPENDENT
     Route: 058

REACTIONS (7)
  - ASTHENIA [None]
  - BLOOD GLUCOSE ABNORMAL [None]
  - DIZZINESS [None]
  - DRUG INTERACTION [None]
  - DYSSTASIA [None]
  - FEELING ABNORMAL [None]
  - GRAND MAL CONVULSION [None]
